FAERS Safety Report 19685469 (Version 3)
Quarter: 2021Q4

REPORT INFORMATION
  Report Type: Spontaneous
  Country: JP (occurrence: JP)
  Receive Date: 20210811
  Receipt Date: 20211025
  Transmission Date: 20220303
  Serious: Yes (Hospitalization, Other)
  Sender: FDA-Public Use
  Company Number: JP-PFIZER INC-202100986421

PATIENT
  Age: 79 Year
  Sex: Female
  Weight: 59.1 kg

DRUGS (5)
  1. CLINDAMYCIN [Suspect]
     Active Substance: CLINDAMYCIN
     Indication: Dental care
     Dosage: UNK
     Route: 048
     Dates: start: 20210726, end: 20210726
  2. TOCOPHERYL NICOTINATE, D-.ALPHA. [Concomitant]
     Active Substance: TOCOPHERYL NICOTINATE, D-.ALPHA.
     Dosage: 100 MG, 2X/DAY
     Route: 048
  3. CARVEDILOL [Concomitant]
     Active Substance: CARVEDILOL
     Dosage: 2.5 MG, 1X/DAY
     Route: 048
  4. IFENPRODIL [Concomitant]
     Active Substance: IFENPRODIL
     Dosage: 20 MG, 2X/DAY
     Route: 048
  5. CP COMBINATION [Concomitant]
     Dosage: 1 G, 2X/DAY
     Route: 048

REACTIONS (2)
  - Toxic skin eruption [Recovered/Resolved]
  - Rash [Unknown]

NARRATIVE: CASE EVENT DATE: 20210727
